FAERS Safety Report 4955796-7 (Version None)
Quarter: 2006Q1

REPORT INFORMATION
  Report Type: 
  Country: None (occurrence: None)
  Receive Date: 20060327
  Receipt Date: 20060327
  Transmission Date: 20060701
  Serious: Yes (Hospitalization, Other)
  Sender: FDA-Public Use
  Company Number: None

PATIENT
  Age: 27 Year
  Sex: Female
  Weight: 74.8435 kg

DRUGS (2)
  1. ZOLOFT [Suspect]
  2. LAMICTAL [Suspect]

REACTIONS (9)
  - AGITATION [None]
  - ANXIETY [None]
  - ELECTROENCEPHALOGRAM ABNORMAL [None]
  - HALLUCINATION, AUDITORY [None]
  - HEART RATE IRREGULAR [None]
  - HYPERTENSION [None]
  - SEROTONIN SYNDROME [None]
  - TACHYCARDIA [None]
  - TREMOR [None]
